FAERS Safety Report 11022215 (Version 1)
Quarter: 2015Q2

REPORT INFORMATION
  Report Type: Spontaneous
  Country: FI (occurrence: FI)
  Receive Date: 20150413
  Receipt Date: 20150413
  Transmission Date: 20150821
  Serious: Yes (Life-Threatening, Hospitalization)
  Sender: FDA-Public Use
  Company Number: FI-BAYER-2015-053975

PATIENT
  Age: 34 Year
  Sex: Female

DRUGS (1)
  1. MIRENA [Suspect]
     Active Substance: LEVONORGESTREL
     Indication: CONTRACEPTION
     Dosage: 20 MCG/24HR, CONT
     Route: 015
     Dates: start: 20100505, end: 20150314

REACTIONS (4)
  - Abdominal pain upper [None]
  - Ectopic pregnancy with contraceptive device [Not Recovered/Not Resolved]
  - Peritoneal haemorrhage [None]
  - Drug ineffective [None]

NARRATIVE: CASE EVENT DATE: 20150313
